FAERS Safety Report 5663570-1 (Version None)
Quarter: 2008Q1

REPORT INFORMATION
  Report Type: 
  Country: None (occurrence: None)
  Receive Date: 20080313
  Receipt Date: 20080220
  Transmission Date: 20080703
  Serious: No
  Sender: FDA-Public Use
  Company Number: US-BOEHRINGER INGELHEIM GMBH, GERMANY-2008-BP-02582BP

PATIENT
  Age: 67 Year
  Sex: Female

DRUGS (2)
  1. ZANTAC 150 [Suspect]
     Indication: HIATUS HERNIA
     Route: 048
     Dates: start: 20060101
  2. ZANTAC 150 [Suspect]
     Indication: GASTROOESOPHAGEAL REFLUX DISEASE

REACTIONS (2)
  - INCREASED APPETITE [None]
  - WEIGHT INCREASED [None]
